FAERS Safety Report 20359725 (Version 1)
Quarter: 2022Q1

REPORT INFORMATION
  Report Type: Spontaneous
  Country: US (occurrence: US)
  Receive Date: 20220121
  Receipt Date: 20220121
  Transmission Date: 20220423
  Serious: No
  Sender: FDA-Public Use
  Company Number: US-TERSERA THERAPEUTICS LLC-2021TRS004364

PATIENT

DRUGS (4)
  1. PRIALT [Suspect]
     Active Substance: ZICONOTIDE ACETATE
     Indication: Product used for unknown indication
     Dosage: 2.86 MCG, QD (CONCENTRATION 5.7 MCG/ML)
     Route: 037
  2. HYDROMORPHONE [Suspect]
     Active Substance: HYDROMORPHONE
     Indication: Product used for unknown indication
     Dosage: 0.05 MG, QD (CONCENTRATION 0.1 MG/ML)
     Route: 037
  3. BACLOFEN [Suspect]
     Active Substance: BACLOFEN
     Indication: Product used for unknown indication
     Dosage: 225.87 MCG, QD (CONCENTRATION 450 MCG/ML)
     Route: 037
  4. FENTANYL [Suspect]
     Active Substance: FENTANYL
     Indication: Product used for unknown indication
     Dosage: 33.47 MCG, QD (CONCENTRATION 66.7 MCG/ML)
     Route: 037

REACTIONS (3)
  - Somnolence [Unknown]
  - Fatigue [Unknown]
  - Off label use [Unknown]
